FAERS Safety Report 23217523 (Version 1)
Quarter: 2023Q4

REPORT INFORMATION
  Report Type: Spontaneous
  Country: GB (occurrence: GB)
  Receive Date: 20231122
  Receipt Date: 20231122
  Transmission Date: 20240109
  Serious: Yes (Hospitalization, Other)
  Sender: FDA-Public Use
  Company Number: GB-BAXTER-2023BAX033207

PATIENT
  Age: 9 Year
  Sex: Male
  Weight: 25.8 kg

DRUGS (2)
  1. EXTRANEAL [Suspect]
     Active Substance: CALCIUM CHLORIDE\ICODEXTRIN\MAGNESIUM CHLORIDE\SODIUM CHLORIDE\SODIUM LACTATE
     Route: 033
  2. CALCIUM CHLORIDE\DEXTROSE\MAGNESIUM CHLORIDE\SODIUM CHLORIDE [Suspect]
     Active Substance: CALCIUM CHLORIDE\DEXTROSE\MAGNESIUM CHLORIDE\SODIUM CHLORIDE
     Route: 033

REACTIONS (4)
  - Peritonitis bacterial [Recovered/Resolved]
  - Peritoneal cloudy effluent [Unknown]
  - Abdominal pain [Unknown]
  - Device breakage [Unknown]

NARRATIVE: CASE EVENT DATE: 20230916
